FAERS Safety Report 9517404 (Version 1)
Quarter: 2013Q1

REPORT INFORMATION
  Report Type: Spontaneous
  Country: US (occurrence: None)
  Receive Date: 20130305
  Receipt Date: 20130305
  Transmission Date: 20140127
  Serious: Yes (Other)
  Sender: FDA-Public Use
  Company Number: 163-21880-12042132

PATIENT
  Age: 78 Year
  Sex: Male
  Weight: 80.7 kg

DRUGS (3)
  1. REVLIMID [Suspect]
     Indication: PLASMA CELL MYELOMA
     Dosage: 21 IN 28 DAYS
     Route: 048
     Dates: start: 20110824
  2. ZYRTEC (CETIRIZINE HYDROCHLORIDE) (UNKNOWN) [Concomitant]
  3. PENICILLIN (BENZYLPENICILLIN) (UNKNOWN) [Concomitant]

REACTIONS (12)
  - Renal failure [None]
  - Proteinuria [None]
  - Pneumonia [None]
  - Dehydration [None]
  - Urinary tract infection [None]
  - Dizziness [None]
  - Fall [None]
  - Muscle fatigue [None]
  - Diarrhoea [None]
  - Balance disorder [None]
  - Rash generalised [None]
  - Rash [None]
